FAERS Safety Report 17852388 (Version 1)
Quarter: 2020Q2

REPORT INFORMATION
  Report Type: Spontaneous
  Country: NL (occurrence: FR)
  Receive Date: 20200602
  Receipt Date: 20200602
  Transmission Date: 20200714
  Serious: Yes (Other)
  Sender: FDA-Public Use
  Company Number: FR-FRESENIUS KABI-FK202005287

PATIENT
  Age: 60 Year
  Sex: Male
  Weight: 88.5 kg

DRUGS (6)
  1. FUROSEMIDE SODIUM [Suspect]
     Active Substance: FUROSEMIDE SODIUM
     Indication: OEDEMA
     Dosage: 40 MG AS NEEDED
     Route: 042
     Dates: start: 20200311, end: 20200319
  2. RITONAVIR/LOPINAVIR [Suspect]
     Active Substance: LOPINAVIR\RITONAVIR
     Indication: CORONAVIRUS INFECTION
     Dosage: 4 DF DAILY
     Route: 048
     Dates: start: 20200309, end: 20200312
  3. LINEZOLID KABI [Suspect]
     Active Substance: LINEZOLID
     Indication: PROPHYLAXIS
     Dosage: 1200 MG DAILY
     Route: 042
     Dates: start: 20200307, end: 20200313
  4. CEFOTAXIME [Suspect]
     Active Substance: CEFOTAXIME SODIUM
     Indication: PROPHYLAXIS
     Dosage: 6 G DAILY
     Route: 042
     Dates: start: 20200307, end: 20200312
  5. PIPERACILLIN SODIUM/TAZOBACTAM SODIUM [Concomitant]
     Active Substance: PIPERACILLIN SODIUM\TAZOBACTAM SODIUM
     Indication: PRODUCT USED FOR UNKNOWN INDICATION
     Dosage: UNK
  6. METOCLOPRAMIDE HYDROCHLORIDE. [Suspect]
     Active Substance: METOCLOPRAMIDE HYDROCHLORIDE
     Indication: PROPHYLAXIS OF NAUSEA AND VOMITING
     Dosage: 30 MG DAILY
     Route: 042
     Dates: start: 20200310, end: 20200314

REACTIONS (3)
  - Gamma-glutamyltransferase increased [Recovering/Resolving]
  - Hepatocellular injury [Recovered/Resolved]
  - Hyperbilirubinaemia [Recovered/Resolved]

NARRATIVE: CASE EVENT DATE: 20200312
